FAERS Safety Report 23239058 (Version 1)
Quarter: 2023Q4

REPORT INFORMATION
  Report Type: Report from Study
  Country: US (occurrence: US)
  Receive Date: 20231129
  Receipt Date: 20231129
  Transmission Date: 20240109
  Serious: No
  Sender: FDA-Public Use
  Company Number: US-002147023-NVSC2023US248237

PATIENT
  Sex: Female

DRUGS (1)
  1. COSENTYX [Suspect]
     Active Substance: SECUKINUMAB
     Indication: Psoriasis
     Dosage: UNK
     Route: 065

REACTIONS (7)
  - Actinic keratosis [Unknown]
  - Dysaesthesia [Unknown]
  - Xerosis [Unknown]
  - Psoriasis [Unknown]
  - Skin fissures [Unknown]
  - Dry skin [Unknown]
  - Drug ineffective [Unknown]
